FAERS Safety Report 15233634 (Version 1)
Quarter: 2018Q3

REPORT INFORMATION
  Report Type: Spontaneous
  Country: US (occurrence: US)
  Receive Date: 20180802
  Receipt Date: 20180802
  Transmission Date: 20181010
  Serious: No
  Sender: FDA-Public Use
  Company Number: US-B.I. PHARMACEUTICALS,INC./RIDGEFIELD-2018-BI-038595

PATIENT
  Age: 63 Year
  Sex: Female

DRUGS (4)
  1. OFEV [Suspect]
     Active Substance: NINTEDANIB
     Dosage: 1 CAPSULE BID;  FORM STRENGTH: 150MG; FORMULATION: CAPSULE ACTION(S) TAKEN : DOSE NOT CHANGED
     Route: 048
     Dates: start: 201805
  2. HYDROCODONE [Concomitant]
     Active Substance: HYDROCODONE
     Indication: ARTHRITIS
     Dosage: 1 TABLET BID;  FORM STRENGTH: 10MG; FORMULATION: TABLET
     Route: 048
  3. OFEV [Suspect]
     Active Substance: NINTEDANIB
     Dosage: 1 CAPSULE TID;  FORM STRENGTH: 100MG; FORMULATION: CAPSULE ?ACTION(S) TAKEN: DOSE NOT CHANGED
     Route: 048
     Dates: start: 201805, end: 201805
  4. OFEV [Suspect]
     Active Substance: NINTEDANIB
     Indication: IDIOPATHIC PULMONARY FIBROSIS
     Dosage: 1 CAPSULE BID;  FORM STRENGTH: 100 MG; FORMULATION: CAPSULE? ACTION(S) : DOSE INCREASED
     Route: 048
     Dates: start: 201804, end: 201805

REACTIONS (3)
  - Diarrhoea [Not Recovered/Not Resolved]
  - Overdose [Recovered/Resolved]
  - Decreased appetite [Not Recovered/Not Resolved]

NARRATIVE: CASE EVENT DATE: 201805
